FAERS Safety Report 19226390 (Version 1)
Quarter: 2021Q2

REPORT INFORMATION
  Report Type: Spontaneous
  Country: US (occurrence: US)
  Receive Date: 20210505
  Receipt Date: 20210505
  Transmission Date: 20210717
  Serious: No
  Sender: FDA-Public Use
  Company Number: US-ROCHE-1735319

PATIENT
  Age: 65 Year
  Sex: Female
  Weight: 71.73 kg

DRUGS (16)
  1. ONDANSETRON [Concomitant]
     Active Substance: ONDANSETRON
  2. ESBRIET [Suspect]
     Active Substance: PIRFENIDONE
     Dosage: 3 CAPSULES 3 TIMES A DAY AS REPORTED IN DESCRIPTION
     Route: 048
     Dates: start: 20160402
  3. PREDNISONE. [Concomitant]
     Active Substance: PREDNISONE
     Indication: MUSCULAR WEAKNESS
     Dosage: 20MG ONE DAY, 10MG NEXT DAY, ALTERNATING
     Route: 048
     Dates: start: 20160101
  4. VITAMIN D3 [Concomitant]
     Active Substance: CHOLECALCIFEROL
  5. LORAZEPAM. [Concomitant]
     Active Substance: LORAZEPAM
  6. PRIMIDONE. [Concomitant]
     Active Substance: PRIMIDONE
  7. ESBRIET [Suspect]
     Active Substance: PIRFENIDONE
     Route: 048
     Dates: start: 201701
  8. TRAZODONE [Concomitant]
     Active Substance: TRAZODONE HYDROCHLORIDE
  9. ESBRIET [Suspect]
     Active Substance: PIRFENIDONE
     Indication: IDIOPATHIC PULMONARY FIBROSIS
     Route: 048
     Dates: start: 201603
  10. MUCINEX [Concomitant]
     Active Substance: GUAIFENESIN
  11. ATIVAN [Concomitant]
     Active Substance: LORAZEPAM
  12. ZANTAC [Concomitant]
     Active Substance: RANITIDINE HYDROCHLORIDE
  13. IRON [Concomitant]
     Active Substance: IRON
     Route: 048
  14. ESBRIET [Suspect]
     Active Substance: PIRFENIDONE
     Indication: IDIOPATHIC PULMONARY FIBROSIS
     Route: 048
     Dates: start: 20161119
  15. RANITIDINE. [Concomitant]
     Active Substance: RANITIDINE
  16. OMEPRAZOLE. [Concomitant]
     Active Substance: OMEPRAZOLE
     Dosage: CPD

REACTIONS (8)
  - Abdominal discomfort [Unknown]
  - Gastric disorder [Unknown]
  - Malaise [Unknown]
  - Chest discomfort [Not Recovered/Not Resolved]
  - Eructation [Unknown]
  - Intentional product misuse [Unknown]
  - Flatulence [Unknown]
  - Chest pain [Unknown]

NARRATIVE: CASE EVENT DATE: 201603
